FAERS Safety Report 21576876 (Version 1)
Quarter: 2022Q4

REPORT INFORMATION
  Report Type: Spontaneous
  Country: TW (occurrence: TW)
  Receive Date: 20221110
  Receipt Date: 20221110
  Transmission Date: 20230113
  Serious: Yes (Hospitalization, Other)
  Sender: FDA-Public Use
  Company Number: TW-UNITED THERAPEUTICS-UNT-2022-026438

PATIENT

DRUGS (2)
  1. REMODULIN [Suspect]
     Active Substance: TREPROSTINIL
     Indication: Pulmonary arterial hypertension
     Dosage: UNK, CONTINUING
     Route: 058
     Dates: end: 2020
  2. REMODULIN [Suspect]
     Active Substance: TREPROSTINIL
     Indication: Pulmonary arterial hypertension
     Dosage: UNK, CONTINUING
     Route: 041
     Dates: start: 2020

REACTIONS (7)
  - Right ventricular failure [Recovering/Resolving]
  - Oedema peripheral [Unknown]
  - Oliguria [Unknown]
  - Hypotension [Unknown]
  - Anaemia [Unknown]
  - Hypokalaemia [Unknown]
  - Fluid retention [Unknown]

NARRATIVE: CASE EVENT DATE: 20200101
